FAERS Safety Report 5767012-7 (Version None)
Quarter: 2008Q2

REPORT INFORMATION
  Report Type: 
  Country: None (occurrence: None)
  Receive Date: 20080612
  Receipt Date: 20080530
  Transmission Date: 20081010
  Serious: Yes (Life-Threatening)
  Sender: FDA-Public Use
  Company Number: CZ-JNJFOC-20080503381

PATIENT
  Age: 23 Year
  Sex: Male

DRUGS (15)
  1. ITRACONAZOLE [Suspect]
     Indication: ANTIBIOTIC THERAPY
     Route: 065
  2. AUGMENTIN '125' [Concomitant]
     Indication: HAEMOPTYSIS
     Route: 048
  3. KLACID [Concomitant]
     Indication: HAEMOPTYSIS
     Route: 048
  4. KETOCONAZOLE [Concomitant]
     Indication: HAEMOPTYSIS
     Route: 048
  5. HAEMOSTATICS NOS [Concomitant]
     Indication: HAEMOPTYSIS
  6. P-AMINOMETHYLBENZOIC ACID [Concomitant]
     Indication: HAEMOPTYSIS
  7. DICYNONE [Concomitant]
     Indication: HAEMOPTYSIS
  8. CODEINE SUL TAB [Concomitant]
     Indication: HAEMOPTYSIS
  9. CORTICOIDS [Concomitant]
     Indication: HAEMOPTYSIS
  10. ECOBEC [Concomitant]
     Indication: HAEMOPTYSIS
  11. SPIRIVA [Concomitant]
     Indication: HAEMOPTYSIS
  12. ANTICHOLINERGICS [Concomitant]
     Indication: HAEMOPTYSIS
  13. AMPHOTERICIN B [Concomitant]
     Indication: BRONCHOPULMONARY ASPERGILLOSIS
     Route: 042
  14. MAGNESIUM [Concomitant]
     Indication: BLOOD MAGNESIUM DECREASED
  15. CALCIUM [Concomitant]
     Indication: HYPOCALCAEMIA

REACTIONS (1)
  - HAEMOPTYSIS [None]
